FAERS Safety Report 17811109 (Version 1)
Quarter: 2020Q2

REPORT INFORMATION
  Report Type: Spontaneous
  Country: GB (occurrence: GB)
  Receive Date: 20200521
  Receipt Date: 20200521
  Transmission Date: 20200714
  Serious: Yes (Other)
  Sender: FDA-Public Use
  Company Number: GB-TEVA-2020-GB-1237271

PATIENT
  Age: 29 Year
  Sex: Female
  Weight: 75 kg

DRUGS (5)
  1. AMITRIPTYLINE HYDROCHLORIDE. [Concomitant]
     Active Substance: AMITRIPTYLINE HYDROCHLORIDE
     Dosage: 1 DOSAGE FORMS DAILY; AT NIGHT
     Dates: start: 20200424
  2. DULOXETINE HYDROCHLORIDE. [Suspect]
     Active Substance: DULOXETINE HYDROCHLORIDE
     Indication: PAIN
     Dosage: 120 MG
     Route: 048
     Dates: start: 20200123, end: 20200416
  3. DULOXETINE HYDROCHLORIDE. [Suspect]
     Active Substance: DULOXETINE HYDROCHLORIDE
     Dosage: 30 MG
     Route: 048
     Dates: start: 20200123, end: 20200416
  4. BETAMETHASONE. [Concomitant]
     Active Substance: BETAMETHASONE
  5. CLIOQUINOL [Concomitant]
     Active Substance: CLIOQUINOL

REACTIONS (3)
  - Contusion [Unknown]
  - Cutaneous vasculitis [Recovering/Resolving]
  - Petechiae [Unknown]

NARRATIVE: CASE EVENT DATE: 202001
